FAERS Safety Report 12973890 (Version 2)
Quarter: 2017Q1

REPORT INFORMATION
  Report Type: Spontaneous
  Country: US (occurrence: US)
  Receive Date: 20161124
  Receipt Date: 20170113
  Transmission Date: 20170428
  Serious: No
  Sender: FDA-Public Use
  Company Number: US-ASTRAZENECA-2016SF17990

PATIENT
  Age: 942 Month
  Sex: Female
  Weight: 72.6 kg

DRUGS (1)
  1. PULMICORT FLEXHALER [Suspect]
     Active Substance: BUDESONIDE
     Indication: ASTHMA
     Dosage: 180 MCG 120 DOSES
     Route: 055
     Dates: start: 201608

REACTIONS (3)
  - Device malfunction [Unknown]
  - Hypersensitivity [Unknown]
  - Intentional product misuse [Unknown]

NARRATIVE: CASE EVENT DATE: 201608
